FAERS Safety Report 24918044 (Version 1)
Quarter: 2025Q1

REPORT INFORMATION
  Report Type: Spontaneous
  Country: JP (occurrence: JP)
  Receive Date: 20250203
  Receipt Date: 20250203
  Transmission Date: 20250409
  Serious: Yes (Hospitalization, Other)
  Sender: MERCK
  Company Number: JP-MSD-2501JPN004170J

PATIENT
  Age: 72 Year
  Sex: Male

DRUGS (4)
  1. KEYTRUDA [Suspect]
     Active Substance: PEMBROLIZUMAB
     Indication: Lung squamous cell carcinoma stage IV
     Dosage: 200 MILLIGRAM, Q3W
     Route: 041
     Dates: start: 20240717, end: 20250109
  2. CARBOPLATIN [Concomitant]
     Active Substance: CARBOPLATIN
     Indication: Lung squamous cell carcinoma stage IV
     Route: 042
     Dates: start: 20240717, end: 20240917
  3. ABRAXANE [Concomitant]
     Active Substance: PACLITAXEL
     Indication: Lung squamous cell carcinoma stage IV
     Dosage: 100 MILLIGRAM/SQ. METER, QW
     Route: 042
     Dates: start: 20240717, end: 20240917
  4. UBENIMEX [Concomitant]
     Active Substance: UBENIMEX
     Indication: Lung squamous cell carcinoma stage IV
     Dosage: 30 MILLILITER, QD
     Route: 048
     Dates: start: 20240717, end: 20240917

REACTIONS (2)
  - Adrenocorticotropic hormone deficiency [Recovering/Resolving]
  - Malignant neoplasm progression [Unknown]

NARRATIVE: CASE EVENT DATE: 20250109
